FAERS Safety Report 22098842 (Version 3)
Quarter: 2023Q2

REPORT INFORMATION
  Report Type: Spontaneous
  Country: US (occurrence: US)
  Receive Date: 20230315
  Receipt Date: 20230622
  Transmission Date: 20230721
  Serious: Yes (Other)
  Sender: FDA-Public Use
  Company Number: US-PFIZER INC-PV202300047926

PATIENT
  Age: 75 Year
  Sex: Female

DRUGS (2)
  1. IBRANCE [Suspect]
     Active Substance: PALBOCICLIB
     Indication: Breast cancer female
     Dosage: DAYS 1-21 OF 28-DAY CYCLE, TAKEN WHOLE WITH WATER, WITH OR WITHOUT FOOD SAME TIME EACH DAY
     Route: 048
  2. IBRANCE [Suspect]
     Active Substance: PALBOCICLIB
     Dosage: 100 MG, CYCLIC (100 MG ORALLY DAILY, ON DAYS 1-21 OF EACH 28-DAY CYCLE)
     Route: 048

REACTIONS (2)
  - Deafness [Unknown]
  - Hypoacusis [Unknown]
